FAERS Safety Report 5011842-6 (Version None)
Quarter: 2006Q2

REPORT INFORMATION
  Report Type: 
  Country: None (occurrence: None)
  Receive Date: 20060524
  Receipt Date: 20060524
  Transmission Date: 20061013
  Serious: Yes (Hospitalization)
  Sender: FDA-Public Use
  Company Number: None

PATIENT
  Age: 51 Year
  Sex: Male
  Weight: 73.2 kg

DRUGS (10)
  1. CARBAMAZEPINE [Suspect]
     Indication: CONVULSION
     Dosage: 500MG TID PO
     Route: 048
     Dates: start: 20051001
  2. OMEPRAZOLE [Concomitant]
     Indication: HEAD INJURY
  3. NORVASC [Concomitant]
  4. METOPROLOL [Concomitant]
  5. TRAZODONE HCL [Concomitant]
  6. LASIX [Concomitant]
  7. COLACE [Concomitant]
  8. LYRICA [Concomitant]
  9. SPIRONOLACTONE [Concomitant]
  10. M.V.I. [Concomitant]

REACTIONS (5)
  - COORDINATION ABNORMAL [None]
  - FALL [None]
  - GAIT DISTURBANCE [None]
  - NYSTAGMUS [None]
  - VOMITING [None]
